FAERS Safety Report 5168224-6 (Version None)
Quarter: 2006Q4

REPORT INFORMATION
  Report Type: 
  Country: None (occurrence: None)
  Receive Date: 20061208
  Receipt Date: 20061206
  Transmission Date: 20070319
  Serious: Yes (Other)
  Sender: FDA-Public Use
  Company Number: CA-GLAXOSMITHKLINE-A0630817A

PATIENT
  Sex: Female

DRUGS (2)
  1. AVANDIA [Suspect]
     Dosage: 8MG PER DAY
     Dates: start: 20020101
  2. MULTIPLE MEDICATIONS [Concomitant]

REACTIONS (2)
  - MUSCLE DISORDER [None]
  - NEOPLASM MALIGNANT [None]
